FAERS Safety Report 5306153-5 (Version None)
Quarter: 2007Q2

REPORT INFORMATION
  Report Type: 
  Country: None (occurrence: None)
  Receive Date: 20070417
  Receipt Date: 20070409
  Transmission Date: 20071010
  Serious: Yes (Death)
  Sender: FDA-Public Use
  Company Number: CERZ-11612

PATIENT
  Age: 11 Month
  Sex: Female

DRUGS (1)
  1. CEREZYME [Suspect]
     Indication: GAUCHER'S DISEASE
     Dosage: 80 U/KG IV
     Route: 042
     Dates: start: 20061127, end: 20070316

REACTIONS (1)
  - CARDIOPULMONARY FAILURE [None]
